FAERS Safety Report 21228102 (Version 1)
Quarter: 2022Q3

REPORT INFORMATION
  Report Type: Spontaneous
  Country: JP (occurrence: JP)
  Receive Date: 20220818
  Receipt Date: 20220818
  Transmission Date: 20221026
  Serious: Yes (Death, Hospitalization, Other)
  Sender: FDA-Public Use
  Company Number: JP-SLATE RUN PHARMACEUTICALS-22JP001264

PATIENT

DRUGS (7)
  1. GALANTAMINE HYDROBROMIDE [Suspect]
     Active Substance: GALANTAMINE HYDROBROMIDE
     Indication: Dementia Alzheimer^s type
     Dosage: 8 MILLIGRAM, QD
     Route: 048
  2. HERBALS [Suspect]
     Active Substance: HERBALS
     Indication: Neuropsychiatric symptoms
     Dosage: UNK
     Route: 048
  3. ASPIRIN [Concomitant]
     Active Substance: ASPIRIN
     Indication: Cerebral infarction
     Dosage: 100 MILLIGRAM, QD
  4. VONOPRAZAN [Concomitant]
     Active Substance: VONOPRAZAN
     Indication: Chronic gastritis
     Dosage: 10 MILLIGRAM, QD
  5. MEMANTINE [Concomitant]
     Active Substance: MEMANTINE
     Indication: Dementia Alzheimer^s type
     Dosage: 10 MILLIGRAM, QD
     Route: 048
  6. RAMELTEON [Concomitant]
     Active Substance: RAMELTEON
     Indication: Dementia Alzheimer^s type
     Dosage: 8 MILLIGRAM, QD
  7. UNSPECIFIED INGREDIENT [Concomitant]
     Active Substance: UNSPECIFIED INGREDIENT
     Indication: Product used for unknown indication

REACTIONS (17)
  - Ventricular tachyarrhythmia [Fatal]
  - Cardiac failure acute [Unknown]
  - Orthopnoea [Unknown]
  - Dyspnoea at rest [Unknown]
  - Pseudoaldosteronism [Unknown]
  - Hypokalaemia [Unknown]
  - Pleural effusion [Unknown]
  - Cardiomegaly [Unknown]
  - Electrocardiogram QT prolonged [Unknown]
  - Stress cardiomyopathy [Unknown]
  - Low cardiac output syndrome [Unknown]
  - Ventricular tachycardia [Unknown]
  - Torsade de pointes [Unknown]
  - Cardiogenic shock [Unknown]
  - Decreased appetite [Unknown]
  - Asthenia [Unknown]
  - Somnolence [Unknown]
